FAERS Safety Report 11784925 (Version 1)
Quarter: 2015Q4

REPORT INFORMATION
  Report Type: Spontaneous
  Country: US (occurrence: None)
  Receive Date: 20151125
  Receipt Date: 20151125
  Transmission Date: 20160305
  Serious: No
  Sender: FDA-Public Use
  Company Number: None

PATIENT
  Age: 41 Year
  Sex: Male
  Weight: 171 kg

DRUGS (1)
  1. RELIEF BODY GLIDE [Suspect]
     Active Substance: MENTHOL\METHYL SALICYLATE
     Indication: MYALGIA
     Dates: start: 20150930, end: 20150930

REACTIONS (3)
  - Burns second degree [None]
  - Thermal burn [None]
  - Scar [None]

NARRATIVE: CASE EVENT DATE: 20150930
